FAERS Safety Report 8923192 (Version 1)
Quarter: 2012Q4

REPORT INFORMATION
  Report Type: Spontaneous
  Country: ES (occurrence: None)
  Receive Date: 20121109
  Receipt Date: 20121109
  Transmission Date: 20130627
  Serious: Yes (Hospitalization, Other)
  Sender: FDA-Public Use
  Company Number: 2011S1000795

PATIENT
  Age: 33 Year
  Sex: Female

DRUGS (2)
  1. CUBICIN [Suspect]
     Indication: STAPHYLOCOCCAL INFECTION
     Route: 042
     Dates: start: 20110224, end: 20110305
  2. CUBICIN [Suspect]
     Indication: ENDOCARDITIS
     Route: 042
     Dates: start: 20110224, end: 20110305

REACTIONS (2)
  - Rhabdomyolysis [None]
  - Pain in extremity [None]
